FAERS Safety Report 5047686-9 (Version None)
Quarter: 2006Q2

REPORT INFORMATION
  Report Type: 
  Country: None (occurrence: None)
  Receive Date: 20060601
  Receipt Date: 20060131
  Transmission Date: 20061013
  Serious: No
  Sender: FDA-Public Use
  Company Number: US200602000724

PATIENT
  Sex: Female

DRUGS (1)
  1. CYMBALTA [Suspect]
     Dosage: 20 MG, CAP

REACTIONS (2)
  - BLOOD PRESSURE DIASTOLIC INCREASED [None]
  - NAUSEA [None]
